FAERS Safety Report 4422918-6 (Version None)
Quarter: 2004Q3

REPORT INFORMATION
  Report Type: 
  Country: None (occurrence: None)
  Receive Date: 20040804
  Receipt Date: 20040726
  Transmission Date: 20050211
  Serious: Yes (Other)
  Sender: FDA-Public Use
  Company Number: K200401125

PATIENT
  Age: 55 Year
  Sex: Male

DRUGS (11)
  1. ALTACE [Suspect]
     Indication: HYPERTENSION
     Dosage: 10 MG, QD, ORAL
     Route: 048
     Dates: start: 19980101
  2. ISOPHANE INSULIN [Suspect]
     Indication: DIABETES MELLITUS NON-INSULIN-DEPENDENT
     Dosage: 10 MG, QD,ORAL
     Route: 048
     Dates: start: 19980101
  3. RHOTRAL (ACEBUTOLOL HYDROCHLORIDE) [Concomitant]
  4. FLOVENT [Concomitant]
  5. NOVASEN (ACETYLSALICYLIC ACID) [Concomitant]
  6. NITROGLYCERIN [Concomitant]
  7. PENTOXIFYLLINE [Concomitant]
  8. SALVENT (SALBUTAMOL) [Concomitant]
  9. ZOCOR [Concomitant]
  10. SALBUTAMOL (SALBUTAMOL) [Concomitant]
  11. ACETYLCYSTEINE [Concomitant]

REACTIONS (3)
  - COMA [None]
  - CONFUSIONAL STATE [None]
  - HYPOGLYCAEMIA [None]
